FAERS Safety Report 22294653 (Version 2)
Quarter: 2023Q2

REPORT INFORMATION
  Report Type: Spontaneous
  Country: US (occurrence: US)
  Receive Date: 20230508
  Receipt Date: 20230612
  Transmission Date: 20230721
  Serious: Yes (Other)
  Sender: FDA-Public Use
  Company Number: US-OAKRUM PHARMA-2023OAK00009

PATIENT
  Sex: Female
  Weight: 93.878 kg

DRUGS (8)
  1. PYRIMETHAMINE [Suspect]
     Active Substance: PYRIMETHAMINE
     Indication: Cerebral toxoplasmosis
     Dosage: UNK
  2. PYRIMETHAMINE [Suspect]
     Active Substance: PYRIMETHAMINE
     Dosage: 25 MG, 1X/DAY
     Route: 048
  3. BIKTARVY [Concomitant]
     Active Substance: BICTEGRAVIR SODIUM\EMTRICITABINE\TENOFOVIR ALAFENAMIDE FUMARATE
     Dosage: 1 DOSAGE UNITS, 1X/DAY
     Route: 048
  4. ATOVAQUONE [Concomitant]
     Active Substance: ATOVAQUONE
     Dosage: 1500 MG, 1X/DAY
     Route: 048
  5. CLINDAMYCIN [Concomitant]
     Active Substance: CLINDAMYCIN
     Dosage: 300 MG, 3X/DAY
     Route: 048
  6. PROAIR HFA [Concomitant]
     Active Substance: ALBUTEROL SULFATE
     Dosage: 108 (ONE INHALE), EVERY 4-6 HOURS AS NEEDED
  7. FLOVENT HFA [Concomitant]
     Active Substance: FLUTICASONE PROPIONATE
     Dosage: 220 ?G (ONE INHALE), 2X/DAY
  8. LEUCOVORIN SODIUM [Concomitant]
     Active Substance: LEUCOVORIN SODIUM
     Dosage: 25 MG, 1X/DAY
     Route: 048

REACTIONS (2)
  - Chronic obstructive pulmonary disease [Unknown]
  - Off label use [Unknown]
